FAERS Safety Report 11538083 (Version 1)
Quarter: 2015Q3

REPORT INFORMATION
  Report Type: Spontaneous
  Country: US (occurrence: None)
  Receive Date: 20150922
  Receipt Date: 20150922
  Transmission Date: 20151125
  Serious: Yes (Other)
  Sender: FDA-Public Use
  Company Number: US-MDT-ADR-2015-01829

PATIENT
  Age: 59 Year
  Sex: Male

DRUGS (1)
  1. BACLOFEN INTRATHECAL  2000 MCG/ML [Suspect]
     Active Substance: BACLOFEN
     Dosage: 1900 MCG/DAY

REACTIONS (3)
  - Muscle spasms [None]
  - Diaphragmatic spasm [None]
  - Urinary tract infection [None]
